FAERS Safety Report 21201071 (Version 2)
Quarter: 2022Q3

REPORT INFORMATION
  Report Type: Report from Study
  Country: CA (occurrence: CA)
  Receive Date: 20220811
  Receipt Date: 20220905
  Transmission Date: 20221027
  Serious: Yes (Death, Hospitalization, Disabling, Other)
  Sender: FDA-Public Use
  Company Number: CA-BRISTOL-MYERS SQUIBB COMPANY-2022-088715

PATIENT
  Age: 59 Year
  Sex: Male
  Weight: 72.3 kg

DRUGS (8)
  1. IPILIMUMAB [Suspect]
     Active Substance: IPILIMUMAB
     Indication: Metastatic renal cell carcinoma
     Route: 065
     Dates: end: 20220803
  2. NIVOLUMAB [Suspect]
     Active Substance: NIVOLUMAB
     Indication: Metastatic renal cell carcinoma
     Route: 065
     Dates: end: 20220803
  3. NORVASC [Concomitant]
     Active Substance: AMLODIPINE BESYLATE
     Indication: Hypertension
     Dosage: IN THE MORNING
     Route: 048
  4. DILAUDID [Concomitant]
     Active Substance: HYDROMORPHONE HYDROCHLORIDE
     Indication: Product used for unknown indication
     Dosage: TAKE ONE TABLET BY MOUTH EVERY 4 HOURS
     Route: 048
     Dates: start: 20220721
  5. LOSEC [Concomitant]
     Active Substance: OMEPRAZOLE
     Indication: Dyspepsia
     Dosage: TAKE EVERY OTHER DAY
     Route: 048
  6. SENOKOT [Concomitant]
     Active Substance: SENNOSIDES
     Indication: Constipation
     Dosage: TAKE 2 TABLETS (17.2 MG TOTAL) BY MOUTH AS NEEDED IN THE MORNING
     Route: 048
     Dates: start: 20220621, end: 20220621
  7. SENOKOT [Concomitant]
     Active Substance: SENNOSIDES
     Dosage: TAKE 1 TO 4 TABLETS PER ORAL TWICE A DAY TO TARGET SOFT/FORMED MOVEMENT AT MINIMUM EVERY 3 DAYS. STA
     Route: 048
     Dates: start: 20220630
  8. DECADRON [Concomitant]
     Active Substance: DEXAMETHASONE
     Indication: Product used for unknown indication
     Dosage: TAKE TWO TABLET (1 MG TOTAL) BY MOUTH IN THE MORNING FOR 14 DAYS
     Route: 048
     Dates: start: 20220726, end: 20220809

REACTIONS (1)
  - Pneumonitis [Fatal]

NARRATIVE: CASE EVENT DATE: 20220809
